FAERS Safety Report 10953500 (Version 3)
Quarter: 2015Q2

REPORT INFORMATION
  Report Type: Spontaneous
  Country: FR (occurrence: FR)
  Receive Date: 20150325
  Receipt Date: 20150407
  Transmission Date: 20150821
  Serious: Yes (Other)
  Sender: FDA-Public Use
  Company Number: FR-SA-2015SA035984

PATIENT
  Age: 77 Year
  Sex: Female

DRUGS (12)
  1. TAHOR [Suspect]
     Active Substance: ATORVASTATIN CALCIUM
     Dosage: 10 MG FILM COATED TABLET
     Route: 048
  2. METFORMIN [Suspect]
     Active Substance: METFORMIN HYDROCHLORIDE
     Route: 065
  3. EUPANTOL [Suspect]
     Active Substance: PANTOPRAZOLE SODIUM
     Dosage: 20MG GASTRO RESISTANT TABLET
     Route: 048
  4. EUPRESSYL [Suspect]
     Active Substance: URAPIDIL
     Dosage: 60 MG CAPSULE
     Route: 048
  5. TRIATEC [Suspect]
     Active Substance: RAMIPRIL
     Route: 048
  6. KARDEGIC [Suspect]
     Active Substance: ASPIRIN LYSINE
     Route: 048
  7. AMLOR [Suspect]
     Active Substance: AMLODIPINE BESYLATE
     Dosage: AMLOR 10 MG CAPSULE
     Route: 048
  8. ATARAX [Suspect]
     Active Substance: HYDROXYZINE\HYDROXYZINE HYDROCHLORIDE
     Dosage: 25 MG FILM COATED TABLET
     Route: 048
  9. LASILIX [Suspect]
     Active Substance: FUROSEMIDE
     Route: 048
     Dates: end: 20150203
  10. DAONIL [Suspect]
     Active Substance: GLYBURIDE
     Route: 048
  11. ATENOLOL. [Suspect]
     Active Substance: ATENOLOL
     Route: 065
  12. HYPERIUM [Suspect]
     Active Substance: RILMENIDINE PHOSPHATE
     Dosage: 1 MG TABLET
     Route: 048

REACTIONS (1)
  - Pemphigoid [Recovering/Resolving]

NARRATIVE: CASE EVENT DATE: 201411
